FAERS Safety Report 9245994 (Version 1)
Quarter: 2013Q2

REPORT INFORMATION
  Report Type: Spontaneous
  Country: US (occurrence: US)
  Receive Date: 20130422
  Receipt Date: 20130422
  Transmission Date: 20140414
  Serious: No
  Sender: FDA-Public Use
  Company Number: US-BAYER-2013-049910

PATIENT
  Sex: Female

DRUGS (1)
  1. ALEVE CAPLET [Suspect]
     Dosage: UNK DF, UNK
     Route: 048
     Dates: start: 201303

REACTIONS (2)
  - Dry mouth [Not Recovered/Not Resolved]
  - Incorrect drug administration duration [None]
